FAERS Safety Report 9002175 (Version 1)
Quarter: 2013Q1

REPORT INFORMATION
  Report Type: Spontaneous
  Country: US (occurrence: None)
  Receive Date: 20130103
  Receipt Date: 20130103
  Transmission Date: 20140127
  Serious: Yes (Hospitalization)
  Sender: FDA-Public Use
  Company Number: None

PATIENT
  Age: 68 Year
  Sex: Female

DRUGS (1)
  1. AFINITOR [Suspect]
     Indication: BREAST CANCER
     Dosage: 10MG  ONCE DAILY  BY MOUTH
     Route: 048
     Dates: start: 201210, end: 201212

REACTIONS (2)
  - Pneumonia [None]
  - Drug intolerance [None]
